FAERS Safety Report 9305016 (Version 1)
Quarter: 2013Q2

REPORT INFORMATION
  Report Type: Spontaneous
  Country: US (occurrence: US)
  Receive Date: 20130523
  Receipt Date: 20130523
  Transmission Date: 20140414
  Serious: Yes (Hospitalization)
  Sender: FDA-Public Use
  Company Number: US-SANOFI-AVENTIS-2013SA051009

PATIENT
  Age: 81 Year
  Sex: Female

DRUGS (1)
  1. LANTUS [Suspect]
     Indication: TYPE 1 DIABETES MELLITUS
     Dosage: 12-20 UNIT

REACTIONS (8)
  - Retinal artery occlusion [Unknown]
  - Blindness unilateral [Unknown]
  - Nephrolithiasis [Unknown]
  - Cardiac disorder [Unknown]
  - Aortic stenosis [Unknown]
  - Malaise [Unknown]
  - Weight decreased [Unknown]
  - Blood glucose increased [Unknown]
